FAERS Safety Report 9507391 (Version 1)
Quarter: 2013Q3

REPORT INFORMATION
  Report Type: Spontaneous
  Country: US (occurrence: None)
  Receive Date: 20130906
  Receipt Date: 20130906
  Transmission Date: 20140515
  Serious: Yes (Death)
  Sender: FDA-Public Use
  Company Number: None

PATIENT
  Sex: Female

DRUGS (1)
  1. GLEEVEC [Suspect]
     Indication: NEOPLASM MALIGNANT
     Dosage: AT BREAKFAST AND LUNCH
     Route: 048
     Dates: start: 20101001, end: 20130822

REACTIONS (3)
  - Convulsion [None]
  - Cardiac arrest [None]
  - Brain death [None]
